FAERS Safety Report 24823920 (Version 4)
Quarter: 2025Q1

REPORT INFORMATION
  Report Type: Spontaneous
  Country: US (occurrence: US)
  Receive Date: 20250109
  Receipt Date: 20250303
  Transmission Date: 20250409
  Serious: No
  Sender: BAUSCH AND LOMB
  Company Number: US-BAUSCHBL-2025BNL000278

PATIENT
  Age: 78 Year
  Sex: Female

DRUGS (1)
  1. LATANOPROST [Suspect]
     Active Substance: LATANOPROST
     Indication: Glaucoma
     Dosage: 10 YEARS AGO
     Route: 047
     Dates: start: 2015

REACTIONS (5)
  - Burning sensation [Unknown]
  - Pain [Unknown]
  - Erythema [Unknown]
  - Lacrimation increased [Unknown]
  - Product quality issue [Unknown]

NARRATIVE: CASE EVENT DATE: 20250104
